FAERS Safety Report 8445965-6 (Version None)
Quarter: 2012Q2

REPORT INFORMATION
  Report Type: 
  Country: None (occurrence: None)
  Receive Date: 20120618
  Receipt Date: 20120605
  Transmission Date: 20120825
  Serious: Yes (Hospitalization)
  Sender: FDA-Public Use
  Company Number: JP-ROCHE-1077453

PATIENT
  Sex: Female

DRUGS (13)
  1. PREDNISOLONE AND PREDNISOLONE ACETATE AND PREDNISOLONE SODIUM SUCCINAT [Suspect]
     Route: 048
     Dates: start: 20081217, end: 20090512
  2. PREDNISOLONE AND PREDNISOLONE ACETATE AND PREDNISOLONE SODIUM SUCCINAT [Suspect]
     Route: 048
     Dates: start: 20081203, end: 20081216
  3. PREDNISOLONE AND PREDNISOLONE ACETATE AND PREDNISOLONE SODIUM SUCCINAT [Suspect]
     Route: 048
     Dates: start: 20090513, end: 20100402
  4. AZULFIDINE [Concomitant]
     Indication: RHEUMATOID ARTHRITIS
     Route: 048
     Dates: end: 20090414
  5. PROGRAF [Concomitant]
     Indication: RHEUMATOID ARTHRITIS
     Route: 048
     Dates: end: 20090112
  6. ACTEMRA [Suspect]
     Route: 041
     Dates: start: 20100621
  7. PREDNISOLONE AND PREDNISOLONE ACETATE AND PREDNISOLONE SODIUM SUCCINAT [Suspect]
     Indication: RHEUMATOID ARTHRITIS
     Route: 048
     Dates: end: 20081202
  8. ACTEMRA [Suspect]
     Indication: RHEUMATOID ARTHRITIS
     Route: 041
     Dates: start: 20081118, end: 20100119
  9. RABEPRAZOLE SODIUM [Concomitant]
  10. ALENDRONATE SODIUM [Concomitant]
     Indication: OSTEOPOROSIS
     Route: 048
  11. PREDNISOLONE AND PREDNISOLONE ACETATE AND PREDNISOLONE SODIUM SUCCINAT [Suspect]
     Route: 048
     Dates: start: 20100403
  12. RIMATIL [Concomitant]
     Indication: RHEUMATOID ARTHRITIS
     Route: 048
     Dates: end: 20090210
  13. DICLOFENAC SODIUM [Concomitant]
     Indication: RHEUMATOID ARTHRITIS
     Dosage: BRAND REPORTED AS NABOAL SR
     Route: 048

REACTIONS (5)
  - PLEURISY [None]
  - PNEUMONIA PNEUMOCOCCAL [None]
  - PLEURAL EFFUSION [None]
  - HEPATIC STEATOSIS [None]
  - LUNG INFECTION PSEUDOMONAL [None]
